FAERS Safety Report 13269815 (Version 1)
Quarter: 2017Q1

REPORT INFORMATION
  Report Type: Spontaneous
  Country: GR (occurrence: GR)
  Receive Date: 20170224
  Receipt Date: 20170224
  Transmission Date: 20170428
  Serious: Yes (Disabling)
  Sender: FDA-Public Use
  Company Number: GR-BAYER-2017-029847

PATIENT
  Age: 79 Year
  Sex: Male
  Weight: 73 kg

DRUGS (3)
  1. NEXAVAR [Suspect]
     Active Substance: SORAFENIB
     Indication: HEPATOCELLULAR CARCINOMA
     Dosage: 200 MG, BID (1 DOSE IN THE MORNING 1 IN THE EVENING)
     Route: 048
     Dates: start: 20161201, end: 20161210
  2. NEXAVAR [Suspect]
     Active Substance: SORAFENIB
     Indication: HEPATOCELLULAR CARCINOMA
     Dosage: 400 MG, BID (2 DOSES IN THE MORNING 2 IN THE EVENING)
     Route: 048
     Dates: start: 20161101, end: 20161112
  3. NEXAVAR [Suspect]
     Active Substance: SORAFENIB
     Indication: HEPATOCELLULAR CARCINOMA
     Dosage: 200 MG, QD
     Route: 048
     Dates: start: 20161210, end: 20161223

REACTIONS (4)
  - Peripheral swelling [Unknown]
  - Mouth swelling [Unknown]
  - Blindness [Unknown]
  - Intraocular pressure increased [Unknown]

NARRATIVE: CASE EVENT DATE: 20161215
